FAERS Safety Report 14512182 (Version 1)
Quarter: 2018Q1

REPORT INFORMATION
  Report Type: Spontaneous
  Country: US (occurrence: US)
  Receive Date: 20180209
  Receipt Date: 20180209
  Transmission Date: 20180509
  Serious: No
  Sender: FDA-Public Use
  Company Number: US-DSJP-DSU-2017-143270

PATIENT
  Sex: Female

DRUGS (8)
  1. LUNESTA [Concomitant]
     Active Substance: ESZOPICLONE
     Indication: SLEEP DISORDER
     Dosage: UNK
     Route: 048
  2. EVOXAC [Suspect]
     Active Substance: CEVIMELINE HYDROCHLORIDE
     Dosage: 60 MG, TID
     Route: 065
     Dates: start: 201709, end: 201710
  3. EVOXAC [Suspect]
     Active Substance: CEVIMELINE HYDROCHLORIDE
     Dosage: 30 MG, TID
     Route: 065
     Dates: start: 201710
  4. EVOXAC [Suspect]
     Active Substance: CEVIMELINE HYDROCHLORIDE
     Indication: SJOGREN^S SYNDROME
     Dosage: 60 MG, QD
     Route: 065
     Dates: start: 201709, end: 201709
  5. LEXAPRO [Concomitant]
     Active Substance: ESCITALOPRAM OXALATE
     Indication: AFFECTIVE DISORDER
     Dosage: UNK
     Route: 048
  6. VIIBRYD [Concomitant]
     Active Substance: VILAZODONE HYDROCHLORIDE
     Indication: AFFECTIVE DISORDER
     Dosage: UNK
     Route: 048
  7. NEUROTIN                           /01003001/ [Concomitant]
     Indication: PAIN
     Dosage: UNK
     Route: 048
  8. EVOXAC [Suspect]
     Active Substance: CEVIMELINE HYDROCHLORIDE
     Dosage: 60 MG, BID
     Route: 065
     Dates: start: 201709, end: 201709

REACTIONS (2)
  - Off label use [Recovered/Resolved]
  - No adverse event [Recovered/Resolved]

NARRATIVE: CASE EVENT DATE: 201709
